FAERS Safety Report 17683876 (Version 2)
Quarter: 2020Q2

REPORT INFORMATION
  Report Type: Report from Study
  Country: US (occurrence: US)
  Receive Date: 20200420
  Receipt Date: 20200423
  Transmission Date: 20200714
  Serious: Yes (Hospitalization, Other)
  Sender: FDA-Public Use
  Company Number: US-MYLANLABS-2020M1036818

PATIENT
  Age: 54 Year
  Sex: Female

DRUGS (1)
  1. AMBRISENTAN TABLETS [Suspect]
     Active Substance: AMBRISENTAN
     Indication: HEART DISEASE CONGENITAL
     Dosage: 10 MILLIGRAM, QD
     Route: 048
     Dates: start: 20110929

REACTIONS (10)
  - Pyrexia [Unknown]
  - Coronavirus infection [Unknown]
  - Procalcitonin increased [Unknown]
  - Fibrin D dimer increased [Unknown]
  - Dyspnoea [Unknown]
  - Respiratory failure [Unknown]
  - Nasal congestion [Unknown]
  - Sinus tachycardia [Unknown]
  - Cough [Unknown]
  - Left atrial enlargement [Unknown]

NARRATIVE: CASE EVENT DATE: 20200403
